FAERS Safety Report 6243974-9 (Version None)
Quarter: 2009Q2

REPORT INFORMATION
  Report Type: 
  Country: None (occurrence: None)
  Receive Date: 20090623
  Receipt Date: 20090611
  Transmission Date: 20091009
  Serious: Yes (Death, Other)
  Sender: FDA-Public Use
  Company Number: 2009-02404

PATIENT

DRUGS (2)
  1. VELCADE [Suspect]
     Indication: MULTIPLE MYELOMA
  2. HYDROXYCHLOROQUINE (HYDROXYCHLOROQUINE) ORAL [Suspect]
     Indication: MULTIPLE MYELOMA
     Dosage: ORAL
     Route: 048

REACTIONS (2)
  - CLOSTRIDIUM DIFFICILE COLITIS [None]
  - UPPER RESPIRATORY TRACT INFECTION [None]
